FAERS Safety Report 8818042 (Version 2)
Quarter: 2012Q4

REPORT INFORMATION
  Report Type: 
  Country: IT (occurrence: IT)
  Receive Date: 20121001
  Receipt Date: 20121009
  Transmission Date: 20130627
  Serious: Yes (Hospitalization)
  Sender: FDA-Public Use
  Company Number: IT-PFIZER INC-2012242289

PATIENT
  Age: 46 Year
  Sex: Female

DRUGS (1)
  1. XANAX [Suspect]
     Dosage: 10 mg, single
     Route: 048
     Dates: start: 20120825, end: 20120825

REACTIONS (2)
  - Intentional self-injury [Recovering/Resolving]
  - Sopor [Recovering/Resolving]
